FAERS Safety Report 11354269 (Version 1)
Quarter: 2015Q3

REPORT INFORMATION
  Report Type: Spontaneous
  Country: US (occurrence: US)
  Receive Date: 20150807
  Receipt Date: 20150807
  Transmission Date: 20151125
  Serious: No
  Sender: FDA-Public Use
  Company Number: US-JNJFOC-20141007779

PATIENT
  Sex: Male
  Weight: 81.65 kg

DRUGS (3)
  1. MENS ROGAINE EXTRA STRENGTH [Suspect]
     Active Substance: MINOXIDIL
     Indication: ELDERLY
     Route: 061
     Dates: start: 201312
  2. FLUOCINONIDE. [Concomitant]
     Active Substance: FLUOCINONIDE
     Indication: DANDRUFF
     Route: 065
  3. MENS ROGAINE EXTRA STRENGTH [Suspect]
     Active Substance: MINOXIDIL
     Indication: ALOPECIA
     Route: 061
     Dates: start: 201312

REACTIONS (4)
  - Drug ineffective [Unknown]
  - Product use issue [Unknown]
  - Dandruff [Unknown]
  - Hair colour changes [Unknown]
